FAERS Safety Report 23080404 (Version 1)
Quarter: 2023Q4

REPORT INFORMATION
  Report Type: Spontaneous
  Country: HU (occurrence: HU)
  Receive Date: 20231018
  Receipt Date: 20231018
  Transmission Date: 20240110
  Serious: Yes (Other)
  Sender: FDA-Public Use
  Company Number: None

PATIENT
  Sex: Female

DRUGS (2)
  1. FULVESTRANT [Suspect]
     Active Substance: FULVESTRANT
     Indication: Magnetic therapy
  2. ALPELISIB [Suspect]
     Active Substance: ALPELISIB
     Indication: Magnetic therapy

REACTIONS (1)
  - Hyperglycaemia [Unknown]
